FAERS Safety Report 4799727-1 (Version None)
Quarter: 2005Q4

REPORT INFORMATION
  Report Type: 
  Country: None (occurrence: None)
  Receive Date: 20051011
  Receipt Date: 20051011
  Transmission Date: 20060501
  Serious: Yes (Other)
  Sender: FDA-Public Use
  Company Number: None

PATIENT
  Age: 35 Year
  Sex: Male
  Weight: 86.1834 kg

DRUGS (1)
  1. OXYCONTIN [Suspect]
     Indication: PAIN
     Dosage: ONE PO BID/TID
     Route: 048
     Dates: start: 20050701

REACTIONS (3)
  - CONSTIPATION [None]
  - DRUG EFFECT DECREASED [None]
  - HAEMORRHOIDAL HAEMORRHAGE [None]
